FAERS Safety Report 7537452-4 (Version None)
Quarter: 2011Q2

REPORT INFORMATION
  Report Type: 
  Country: None (occurrence: None)
  Receive Date: 20110609
  Receipt Date: 20110531
  Transmission Date: 20111010
  Serious: Yes (Hospitalization)
  Sender: FDA-Public Use
  Company Number: IT-ASTRAZENECA-2011SE34035

PATIENT
  Age: 29408 Day
  Sex: Male

DRUGS (13)
  1. FLUTICASONE PROPIONATE [Concomitant]
     Route: 055
  2. RAMIPRIL [Concomitant]
     Route: 048
  3. XANAX [Concomitant]
     Route: 048
  4. SPIRIVA [Concomitant]
     Route: 055
  5. LASITONE [Concomitant]
     Dosage: 1 DF, 25 MG (FUROSEMIDE) + 37 MG (SPIRONOLACTONE)
     Route: 048
  6. EUTIROX [Concomitant]
     Route: 048
  7. AVODART [Concomitant]
     Route: 048
  8. CONGESCOR [Concomitant]
     Route: 048
  9. SEROQUEL [Suspect]
     Indication: PSYCHOTIC DISORDER
     Route: 048
     Dates: start: 20100501, end: 20110520
  10. ATIMOS [Concomitant]
     Route: 055
  11. OMEPRAZOLE [Concomitant]
     Route: 048
  12. LASIX [Concomitant]
     Route: 048
  13. ALFUZOSIN HCL [Concomitant]
     Route: 048

REACTIONS (2)
  - PULMONARY EMBOLISM [None]
  - DYSPNOEA [None]
